FAERS Safety Report 8338919-1 (Version None)
Quarter: 2012Q2

REPORT INFORMATION
  Report Type: 
  Country: None (occurrence: None)
  Receive Date: 20120506
  Receipt Date: 20051101
  Transmission Date: 20120825
  Serious: Yes (Death, Hospitalization, Other)
  Sender: FDA-Public Use
  Company Number: PHHO2005CA15499

PATIENT
  Sex: Female

DRUGS (7)
  1. PERCOCET [Concomitant]
  2. ZOMETA [Suspect]
     Indication: BREAST CANCER
     Dosage: 4 MG, QMO
     Route: 042
     Dates: start: 20050615
  3. ARIMIDEX [Concomitant]
  4. PAMIDRONATE DISODIUM [Concomitant]
  5. ZOMETA [Suspect]
     Dosage: 4 MG, ONCE IN EVERY 3 WEEKS
     Route: 042
     Dates: start: 20060304
  6. BONEFOS [Concomitant]
  7. OXYCONTIN [Concomitant]

REACTIONS (3)
  - DEATH [None]
  - DEPRESSED MOOD [None]
  - PAIN [None]
